FAERS Safety Report 15001375 (Version 1)
Quarter: 2018Q2

REPORT INFORMATION
  Report Type: Spontaneous
  Country: US (occurrence: US)
  Receive Date: 20180612
  Receipt Date: 20180612
  Transmission Date: 20180711
  Serious: Yes (Hospitalization, Other)
  Sender: FDA-Public Use
  Company Number: US-ASTELLAS-2018US025740

PATIENT
  Age: 77 Year
  Sex: Female

DRUGS (1)
  1. MYRBETRIQ [Suspect]
     Active Substance: MIRABEGRON
     Indication: PRODUCT USED FOR UNKNOWN INDICATION
     Route: 065
     Dates: start: 20180417, end: 20180517

REACTIONS (9)
  - Fractured coccyx [Unknown]
  - Loss of consciousness [Unknown]
  - Fall [Unknown]
  - Constipation [Unknown]
  - Urinary tract infection [Unknown]
  - Decreased appetite [Unknown]
  - Head injury [Unknown]
  - Kidney infection [Unknown]
  - Gait inability [Unknown]
